FAERS Safety Report 9792625 (Version 1)
Quarter: 2014Q1

REPORT INFORMATION
  Report Type: Spontaneous
  Country: US (occurrence: US)
  Receive Date: 20140102
  Receipt Date: 20140102
  Transmission Date: 20141002
  Serious: No
  Sender: FDA-Public Use
  Company Number: US-SA-2013SA101702

PATIENT
  Age: 49 Year
  Sex: Male

DRUGS (1)
  1. AUBAGIO [Suspect]
     Indication: MULTIPLE SCLEROSIS
     Dosage: PRODUCT STARTED THREE-FOUR MONTHS AGO.
     Route: 048

REACTIONS (2)
  - Rash pruritic [Not Recovered/Not Resolved]
  - Burning sensation [Not Recovered/Not Resolved]
